FAERS Safety Report 11708652 (Version 1)
Quarter: 2015Q4

REPORT INFORMATION
  Report Type: Spontaneous
  Country: US (occurrence: US)
  Receive Date: 20151104
  Receipt Date: 20151104
  Transmission Date: 20160304
  Serious: No
  Sender: FDA-Public Use
  Company Number: US-ELI_LILLY_AND_COMPANY-US201012003270

PATIENT
  Age: 59 Year
  Sex: Male

DRUGS (10)
  1. FORTEO [Suspect]
     Active Substance: TERIPARATIDE
     Dosage: 20 UG, DAILY (1/D)
  2. SPIRIVA [Concomitant]
     Active Substance: TIOTROPIUM BROMIDE MONOHYDRATE
  3. ALBUTEROL. [Concomitant]
     Active Substance: ALBUTEROL
  4. TESTOSTERONE. [Concomitant]
     Active Substance: TESTOSTERONE
  5. ASPIRIN. [Concomitant]
     Active Substance: ASPIRIN
  6. CELEBREX [Concomitant]
     Active Substance: CELECOXIB
  7. MORPHINE [Concomitant]
     Active Substance: MORPHINE
  8. FORTEO [Suspect]
     Active Substance: TERIPARATIDE
     Dosage: 20 UG, DAILY (1/D)
     Dates: start: 20091104
  9. PLAQUENIL [Concomitant]
     Active Substance: HYDROXYCHLOROQUINE SULFATE
  10. ATERAX [Concomitant]
     Active Substance: HYDROXYZINE HYDROCHLORIDE

REACTIONS (3)
  - Malaise [Recovered/Resolved]
  - Connective tissue disorder [Recovered/Resolved]
  - Pain [Recovered/Resolved]

NARRATIVE: CASE EVENT DATE: 20101201
